FAERS Safety Report 11620117 (Version 2)
Quarter: 2015Q4

REPORT INFORMATION
  Report Type: Spontaneous
  Country: US (occurrence: US)
  Receive Date: 20151012
  Receipt Date: 20151015
  Transmission Date: 20160304
  Serious: No
  Sender: FDA-Public Use
  Company Number: US-SA-2015SA104858

PATIENT
  Age: 62 Year
  Sex: Female

DRUGS (2)
  1. AFREZZA [Suspect]
     Active Substance: INSULIN HUMAN
     Dosage: AT DINNER 1X^S PER DAY DOSE:8 UNIT(S)
  2. AFREZZA [Suspect]
     Active Substance: INSULIN HUMAN
     Dosage: 4 UNITS DOSE:4 UNIT(S)

REACTIONS (3)
  - Stomach mass [Unknown]
  - Laboratory test abnormal [Unknown]
  - Arthritis [Unknown]
